FAERS Safety Report 8337703-2 (Version None)
Quarter: 2012Q2

REPORT INFORMATION
  Report Type: 
  Country: None (occurrence: None)
  Receive Date: 20120504
  Receipt Date: 20120426
  Transmission Date: 20120825
  Serious: Yes (Hospitalization)
  Sender: FDA-Public Use
  Company Number: ZA-PFIZER INC-2012103345

PATIENT
  Sex: Male

DRUGS (2)
  1. CORDARONE [Interacting]
     Dosage: UNK
     Route: 048
  2. ZITHROMAX [Suspect]
     Indication: ANTIBIOTIC THERAPY
     Dosage: 1 G, UNK
     Route: 048

REACTIONS (1)
  - DRUG INTERACTION [None]
